FAERS Safety Report 8370196-8 (Version None)
Quarter: 2012Q2

REPORT INFORMATION
  Report Type: 
  Country: None (occurrence: None)
  Receive Date: 20120518
  Receipt Date: 20120511
  Transmission Date: 20120825
  Serious: Yes (Hospitalization, Other)
  Sender: FDA-Public Use
  Company Number: DE-B.I. PHARMACEUTICALS,INC./RIDGEFIELD-2012-DE-01280DE

PATIENT
  Sex: Female

DRUGS (2)
  1. ASPIRIN [Concomitant]
  2. PRADAXA [Suspect]

REACTIONS (2)
  - RENAL FUNCTION TEST ABNORMAL [None]
  - NEOPLASM [None]
